FAERS Safety Report 25512892 (Version 1)
Quarter: 2025Q3

REPORT INFORMATION
  Report Type: Report from Study
  Country: BR (occurrence: BR)
  Receive Date: 20250703
  Receipt Date: 20250703
  Transmission Date: 20251020
  Serious: Yes (Other)
  Sender: TEVA
  Company Number: BR-TEVA-VS-3347627

PATIENT
  Age: 46 Year
  Sex: Female

DRUGS (1)
  1. COPAXONE [Suspect]
     Active Substance: GLATIRAMER ACETATE
     Indication: Multiple sclerosis
     Route: 065
     Dates: start: 20250516, end: 20250623

REACTIONS (8)
  - Fatigue [Not Recovered/Not Resolved]
  - Injection site discolouration [Unknown]
  - Nausea [Unknown]
  - Balance disorder [Unknown]
  - Somnolence [Unknown]
  - Injection site mass [Unknown]
  - Paraesthesia [Not Recovered/Not Resolved]
  - Headache [Unknown]

NARRATIVE: CASE EVENT DATE: 20250101
